FAERS Safety Report 19358273 (Version 1)
Quarter: 2021Q2

REPORT INFORMATION
  Report Type: Spontaneous
  Country: CN (occurrence: CN)
  Receive Date: 20210531
  Receipt Date: 20210531
  Transmission Date: 20210717
  Serious: Yes (Hospitalization, Other)
  Sender: FDA-Public Use
  Company Number: CN-BAXTER-2021BAX013147

PATIENT
  Age: 4 Year
  Sex: Male
  Weight: 17.6 kg

DRUGS (16)
  1. MESNA. [Suspect]
     Active Substance: MESNA
     Dosage: DOSE RE?INTRODUCED
     Route: 042
     Dates: start: 202105
  2. ENDOXAN [Suspect]
     Active Substance: CYCLOPHOSPHAMIDE
     Dosage: DAY 1?5: CYCLOPHOSPHAMIDE 172.5 MG + 0.9% NS 42ML
     Route: 041
     Dates: start: 20210427, end: 20210501
  3. 0.9% SODIUM CHLORIDE INJECTION [Suspect]
     Active Substance: SODIUM CHLORIDE
     Dosage: DOSE RE?INTRODUCED: ONDANSETRON HYDROCHLORIDE + 0.9% NS
     Route: 041
     Dates: start: 202105
  4. MESNA. [Suspect]
     Active Substance: MESNA
     Indication: PROPHYLAXIS
     Route: 042
     Dates: start: 20210427, end: 20210501
  5. ENDOXAN [Suspect]
     Active Substance: CYCLOPHOSPHAMIDE
     Indication: NEUROBLASTOMA RECURRENT
     Dosage: PRIOR REGIMEN
     Route: 065
  6. 0.9% SODIUM CHLORIDE INJECTION [Suspect]
     Active Substance: SODIUM CHLORIDE
     Dosage: DOSE RE?INTRODUCED: CYCLOPHOSPHAMIDE + 0.9% NS
     Route: 041
     Dates: start: 202105
  7. 0.9% SODIUM CHLORIDE INJECTION [Suspect]
     Active Substance: SODIUM CHLORIDE
     Dosage: ONDANSETRON HYDROCHLORIDE 3.5 MG + 0.9% NS 25ML
     Route: 041
     Dates: start: 20210427, end: 20210501
  8. TOPOTECAN HYDROCHLORIDE. [Suspect]
     Active Substance: TOPOTECAN HYDROCHLORIDE
     Dosage: DOSE RE?INTRODUCED: TOPOTECAN HYDROCHLORIDE + 0.9% NS
     Route: 041
     Dates: start: 202105
  9. ONDANSETRON HYDROCHLORIDE. [Suspect]
     Active Substance: ONDANSETRON HYDROCHLORIDE
     Indication: PROPHYLAXIS OF NAUSEA AND VOMITING
     Dosage: ONDANSETRON HYDROCHLORIDE 3.5 MG + 0.9% NS 25ML
     Route: 041
     Dates: start: 20210427, end: 20210501
  10. 0.9% SODIUM CHLORIDE INJECTION [Suspect]
     Active Substance: SODIUM CHLORIDE
     Dosage: DOSE RE?INTRODUCED: TOPOTECAN HYDROCHLORIDE + 0.9% NS
     Route: 041
     Dates: start: 202105
  11. TOPOTECAN HYDROCHLORIDE. [Suspect]
     Active Substance: TOPOTECAN HYDROCHLORIDE
     Indication: NEUROBLASTOMA RECURRENT
     Dosage: PRIOR DRUG
     Route: 065
  12. TOPOTECAN HYDROCHLORIDE. [Suspect]
     Active Substance: TOPOTECAN HYDROCHLORIDE
     Dosage: DAY 1?5: TOPOTECAN HYDROCHLORIDE 0.52 MG + 0.9% NS 20 ML
     Route: 041
     Dates: start: 20210427, end: 20210501
  13. 0.9% SODIUM CHLORIDE INJECTION [Suspect]
     Active Substance: SODIUM CHLORIDE
     Indication: MEDICATION DILUTION
     Dosage: DAY 1?5: CYCLOPHOSPHAMIDE 172.5 MG + 0.9% NS 42ML
     Route: 041
     Dates: start: 20210427, end: 20210501
  14. ONDANSETRON HYDROCHLORIDE. [Suspect]
     Active Substance: ONDANSETRON HYDROCHLORIDE
     Dosage: DOSE RE?INTRODUCED: ONDANSETRON HYDROCHLORIDE + 0.9% NS
     Route: 041
     Dates: start: 202105
  15. ENDOXAN [Suspect]
     Active Substance: CYCLOPHOSPHAMIDE
     Dosage: DOSE RE?INTRODUCED: CYCLOPHOSPHAMIDE + 0.9% NS
     Route: 041
     Dates: start: 202105
  16. 0.9% SODIUM CHLORIDE INJECTION [Suspect]
     Active Substance: SODIUM CHLORIDE
     Dosage: DAY 1?5: TOPOTECAN HYDROCHLORIDE 0.52 MG + 0.9% NS 20 ML
     Route: 041
     Dates: start: 20210427, end: 20210501

REACTIONS (3)
  - Pancytopenia [Recovered/Resolved]
  - Pyrexia [Recovering/Resolving]
  - Pancytopenia [Recovering/Resolving]

NARRATIVE: CASE EVENT DATE: 20210507
